FAERS Safety Report 13930164 (Version 3)
Quarter: 2018Q2

REPORT INFORMATION
  Report Type: Spontaneous
  Country: JP (occurrence: JP)
  Receive Date: 20170901
  Receipt Date: 20180425
  Transmission Date: 20180711
  Serious: Yes (Hospitalization)
  Sender: FDA-Public Use
  Company Number: JP-TAIHO ONCOLOGY INC-JPTT171047

PATIENT
  Age: 69 Year
  Sex: Male

DRUGS (2)
  1. LOXOPROFEN SODIUM [Concomitant]
     Active Substance: LOXOPROFEN SODIUM
     Indication: PAIN MANAGEMENT
     Route: 048
     Dates: start: 201306
  2. LONSURF [Suspect]
     Active Substance: TIPIRACIL HYDROCHLORIDE\TRIFLURIDINE
     Indication: RECTAL CANCER METASTATIC
     Dosage: 60 MG X 2/DAY, ON DAYS 1-5 AND 8-12 OF EACH 28-DAY CYCLE, CYCLE 1
     Route: 048
     Dates: start: 20150120, end: 20150131

REACTIONS (4)
  - Tinnitus [Unknown]
  - Diarrhoea [Unknown]
  - Cholangitis acute [Recovering/Resolving]
  - Decreased appetite [Unknown]

NARRATIVE: CASE EVENT DATE: 20150121
